APPROVED DRUG PRODUCT: METFORMIN HYDROCHLORIDE
Active Ingredient: METFORMIN HYDROCHLORIDE
Strength: 1GM
Dosage Form/Route: TABLET;ORAL
Application: A205096 | Product #003 | TE Code: AB
Applicant: CSPC OUYI PHARMACEUTICAL CO LTD
Approved: Jul 11, 2016 | RLD: No | RS: No | Type: RX